FAERS Safety Report 5909440-2 (Version None)
Quarter: 2008Q4

REPORT INFORMATION
  Report Type: 
  Country: None (occurrence: None)
  Receive Date: 20081006
  Receipt Date: 20080924
  Transmission Date: 20090506
  Serious: Yes (Hospitalization, Other)
  Sender: FDA-Public Use
  Company Number: US-PFIZER INC-2008081755

PATIENT
  Sex: Female
  Weight: 66.7 kg

DRUGS (2)
  1. CHANTIX [Suspect]
     Indication: SMOKING CESSATION THERAPY
     Route: 048
     Dates: start: 20080515, end: 20080601
  2. FENTANYL [Concomitant]
     Indication: BACK PAIN

REACTIONS (11)
  - ABNORMAL BEHAVIOUR [None]
  - ABNORMAL DREAMS [None]
  - AGGRESSION [None]
  - ANGER [None]
  - EMOTIONAL DISORDER [None]
  - IMPULSIVE BEHAVIOUR [None]
  - INAPPROPRIATE AFFECT [None]
  - INTENTIONAL SELF-INJURY [None]
  - NIGHTMARE [None]
  - SOMNOLENCE [None]
  - SUICIDAL IDEATION [None]
